FAERS Safety Report 17389218 (Version 1)
Quarter: 2020Q1

REPORT INFORMATION
  Report Type: Report from Study
  Country: US (occurrence: US)
  Receive Date: 20200207
  Receipt Date: 20200207
  Transmission Date: 20200409
  Serious: Yes (Hospitalization)
  Sender: FDA-Public Use
  Company Number: US-EMD SERONO-9143652

PATIENT
  Sex: Male

DRUGS (2)
  1. MAVENCLAD [Suspect]
     Active Substance: CLADRIBINE
     Indication: MULTIPLE SCLEROSIS
     Dosage: FIRST CYCLE THERAPY: CUMULATIVE DOSE OF 80 MG.
     Route: 048
     Dates: start: 20191227
  2. MAVENCLAD [Suspect]
     Active Substance: CLADRIBINE
     Dosage: SECOND CYCLE THERAPY: TOOK TWO TABLETS DAILY ON 26 JAN 2020 AND 27 JAN 2020.
     Route: 048
     Dates: start: 20200126

REACTIONS (2)
  - Infection [Unknown]
  - Nephrolithiasis [Unknown]
